FAERS Safety Report 8791273 (Version 1)
Quarter: 2012Q4

REPORT INFORMATION
  Report Type: Spontaneous
  Country: US (occurrence: None)
  Receive Date: 20120914
  Receipt Date: 20120914
  Transmission Date: 20130627
  Serious: Yes (Other)
  Sender: FDA-Public Use
  Company Number: None

PATIENT
  Age: 42 Year
  Sex: Male
  Weight: 84.82 kg

DRUGS (2)
  1. BACTRIM DS TABLETS [Suspect]
     Indication: CELLULITIS
     Dosage: 2 tabs po bid
     Route: 048
     Dates: start: 20110709, end: 20110710
  2. ACYCLOVIR [Concomitant]

REACTIONS (4)
  - Pyrexia [None]
  - Chills [None]
  - Erythema [None]
  - Rash maculo-papular [None]
